FAERS Safety Report 5777922-2 (Version None)
Quarter: 2008Q2

REPORT INFORMATION
  Report Type: 
  Country: None (occurrence: None)
  Receive Date: 20080618
  Receipt Date: 20080605
  Transmission Date: 20081010
  Serious: Yes (Hospitalization)
  Sender: FDA-Public Use
  Company Number: FR-GENENTECH-239488

PATIENT
  Sex: Female

DRUGS (5)
  1. RITUXIMAB [Suspect]
     Indication: DIFFUSE LARGE B-CELL LYMPHOMA
     Dosage: 375 MG/M2, Q3W
     Route: 042
     Dates: start: 20070316
  2. CISPLATIN [Suspect]
     Indication: B-CELL LYMPHOMA
     Dosage: 165 MG, UNK
     Route: 042
     Dates: start: 20070318
  3. CYTARABINE [Suspect]
     Indication: B-CELL LYMPHOMA
     Dosage: 6600 MG, UNK
     Route: 042
     Dates: start: 20070320
  4. DEXAMETHASONE TAB [Suspect]
     Indication: B-CELL LYMPHOMA
     Dosage: 66 MG, UNK
     Route: 042
     Dates: start: 20070318
  5. LENOGRASTIM [Concomitant]
     Indication: DRUG USE FOR UNKNOWN INDICATION

REACTIONS (3)
  - GASTROINTESTINAL HAEMORRHAGE [None]
  - HAEMODYNAMIC INSTABILITY [None]
  - THROMBOCYTOPENIA [None]
